FAERS Safety Report 11684547 (Version 2)
Quarter: 2015Q4

REPORT INFORMATION
  Report Type: Spontaneous
  Country: US (occurrence: US)
  Receive Date: 20151029
  Receipt Date: 20151202
  Transmission Date: 20160304
  Serious: No
  Sender: FDA-Public Use
  Company Number: GXBR2015US002187

PATIENT
  Sex: Female

DRUGS (1)
  1. AZITHROMYCIN [Suspect]
     Active Substance: AZITHROMYCIN ANHYDROUS
     Indication: DENTAL CARE
     Dosage: 250 MG, UNK
     Route: 048

REACTIONS (3)
  - Fatigue [Unknown]
  - Hypersensitivity [Unknown]
  - Nausea [Unknown]
